FAERS Safety Report 10868945 (Version 1)
Quarter: 2015Q1

REPORT INFORMATION
  Report Type: Spontaneous
  Country: US (occurrence: US)
  Receive Date: 20150225
  Receipt Date: 20150225
  Transmission Date: 20150721
  Serious: Yes (Other)
  Sender: FDA-Public Use
  Company Number: US-GILEAD-2015-0134394

PATIENT
  Age: 57 Year
  Sex: Male
  Weight: 107.3 kg

DRUGS (7)
  1. BUPROPION [Concomitant]
     Active Substance: BUPROPION
  2. SOVALDI [Suspect]
     Active Substance: SOFOSBUVIR
     Indication: HEPATITIS C
     Dosage: 400 MG, QD
     Route: 048
     Dates: start: 20150106
  3. OLYSIO [Suspect]
     Active Substance: SIMEPREVIR
     Indication: HEPATITIS C
     Dosage: 150 MG, QD
     Route: 048
     Dates: start: 20141105
  4. SPIRONOLACTONE. [Concomitant]
     Active Substance: SPIRONOLACTONE
     Dosage: UNK
     Dates: end: 20141120
  5. DILTIAZEM [Concomitant]
     Active Substance: DILTIAZEM
  6. ACETYLSALICYLIC ACID [Concomitant]
     Active Substance: ASPIRIN
  7. INSPRA [Concomitant]
     Active Substance: EPLERENONE
     Dosage: UNK
     Dates: start: 20141120

REACTIONS (2)
  - Fatigue [Unknown]
  - Blood creatinine increased [Unknown]
